FAERS Safety Report 7892843-7 (Version None)
Quarter: 2011Q4

REPORT INFORMATION
  Report Type: 
  Country: None (occurrence: None)
  Receive Date: 20111104
  Receipt Date: 20111027
  Transmission Date: 20120403
  Serious: Yes (Other)
  Sender: FDA-Public Use
  Company Number: US-US-EMD SERONO, INC.-7005512

PATIENT
  Sex: Female
  Weight: 107 kg

DRUGS (13)
  1. COPAXONE [Suspect]
     Indication: MULTIPLE SCLEROSIS
     Dates: start: 20090223
  2. GABAPENTIN [Concomitant]
  3. TRAZODONE HCL [Concomitant]
     Indication: SLEEP DISORDER
     Dosage: 1.5 TABLETS AT BED TIME
  4. OXYCONTIN [Concomitant]
  5. LORAZEPAM [Concomitant]
     Dosage: AT BEDTIME
  6. AMLODIPINE [Concomitant]
  7. WELCHOL [Concomitant]
     Indication: BLOOD CHOLESTEROL INCREASED
     Dosage: THREE TABLETS
  8. ZETIA [Concomitant]
     Indication: BLOOD CHOLESTEROL INCREASED
  9. PERCOCET [Concomitant]
  10. REBIF [Suspect]
     Indication: MULTIPLE SCLEROSIS
     Dates: start: 20040101, end: 20100101
  11. NUVIGIL [Concomitant]
     Indication: FATIGUE
  12. CYMBALTA [Concomitant]
     Indication: DEPRESSION
     Dosage: BED TIME
     Dates: start: 19900101
  13. METOPROLOL TARTRATE [Concomitant]

REACTIONS (2)
  - RENAL CANCER [None]
  - CENTRAL NERVOUS SYSTEM LESION [None]
